FAERS Safety Report 7435253-9 (Version None)
Quarter: 2011Q2

REPORT INFORMATION
  Report Type: 
  Country: None (occurrence: None)
  Receive Date: 20110425
  Receipt Date: 20110411
  Transmission Date: 20111010
  Serious: Yes (Other)
  Sender: FDA-Public Use
  Company Number: JP-ASTRAZENECA-2011SE22722

PATIENT
  Age: 68 Year
  Sex: Male

DRUGS (1)
  1. MEROPENEM [Suspect]
     Route: 042
     Dates: start: 20090601, end: 20090601

REACTIONS (1)
  - TOXIC EPIDERMAL NECROLYSIS [None]
